FAERS Safety Report 7494599-9 (Version None)
Quarter: 2011Q2

REPORT INFORMATION
  Report Type: 
  Country: None (occurrence: None)
  Receive Date: 20110520
  Receipt Date: 20110509
  Transmission Date: 20111010
  Serious: Yes (Other)
  Sender: FDA-Public Use
  Company Number: PHHY2011DE39406

PATIENT
  Sex: Female

DRUGS (2)
  1. SANDOSTATIN [Suspect]
     Indication: PANCREATIC NEUROENDOCRINE TUMOUR
     Dosage: 50 UG, DAILY
     Dates: start: 20110101
  2. SANDOSTATIN [Suspect]
     Dosage: 200 UG, DAILY

REACTIONS (5)
  - FLUSHING [None]
  - DIARRHOEA [None]
  - ABDOMINAL WALL DISORDER [None]
  - ACUTE ABDOMEN [None]
  - ABDOMINAL PAIN [None]
